FAERS Safety Report 13070618 (Version 1)
Quarter: 2016Q4

REPORT INFORMATION
  Report Type: Report from Study
  Country: JP (occurrence: JP)
  Receive Date: 20161229
  Receipt Date: 20161229
  Transmission Date: 20170207
  Serious: Yes (Other)
  Sender: FDA-Public Use
  Company Number: JP-ACTELION-A-CH2016-147404

PATIENT
  Age: 89 Year
  Sex: Female

DRUGS (12)
  1. THYRADIN [Concomitant]
     Active Substance: LEVOTHYROXINE
  2. ARGAMATE [Concomitant]
     Active Substance: CALCIUM POLYSTYRENE SULFONATE
  3. SENNOSIDE [Concomitant]
     Active Substance: SENNOSIDES
  4. OPSUMIT [Suspect]
     Active Substance: MACITENTAN
     Indication: PULMONARY ARTERIAL HYPERTENSION
     Dosage: 10 MG, OD
     Route: 048
     Dates: start: 20160902, end: 20160926
  5. ROHYPNOL [Concomitant]
     Active Substance: FLUNITRAZEPAM
  6. MAGMITT [Concomitant]
     Active Substance: MAGNESIUM OXIDE
  7. VITAMINS NOS [Concomitant]
     Active Substance: VITAMINS
  8. MOSAPRIDE [Concomitant]
     Active Substance: MOSAPRIDE
  9. TAKECAB [Concomitant]
     Active Substance: VONOPRAZAN FUMURATE
  10. AVAPRO [Concomitant]
     Active Substance: IRBESARTAN
  11. PANTOSIN [Concomitant]
     Active Substance: PANTETHINE
  12. ADCIRCA [Concomitant]
     Active Substance: TADALAFIL

REACTIONS (6)
  - Red blood cell count decreased [Recovered/Resolved]
  - White blood cell count decreased [Recovered/Resolved]
  - Chronic kidney disease [Unknown]
  - Nephrogenic anaemia [Recovered/Resolved]
  - Haematocrit decreased [Recovered/Resolved]
  - Haemoglobin decreased [Recovered/Resolved]

NARRATIVE: CASE EVENT DATE: 20160914
